FAERS Safety Report 21101226 (Version 1)
Quarter: 2022Q3

REPORT INFORMATION
  Report Type: Spontaneous
  Country: CH (occurrence: CH)
  Receive Date: 20220719
  Receipt Date: 20220719
  Transmission Date: 20221026
  Serious: Yes (Other)
  Sender: FDA-Public Use
  Company Number: CH-MYLANLABS-2022M1039344

PATIENT
  Age: 54 Year
  Sex: Male

DRUGS (12)
  1. AZACITIDINE [Suspect]
     Active Substance: AZACITIDINE
     Indication: Acute myeloid leukaemia
     Dosage: 152 MILLIGRAM, QD (152 MG PER DAY DURING 5 DAYS PER MONTH)
     Route: 065
     Dates: start: 20211004
  2. VENETOCLAX [Suspect]
     Active Substance: VENETOCLAX
     Indication: Product used for unknown indication
     Dosage: UNK
     Route: 065
  3. URSODIOL [Concomitant]
     Active Substance: URSODIOL
     Dosage: 250 MILLIGRAM, TID (250MG X3 PER DAY)
     Route: 065
  4. PENICILLIN V [Concomitant]
     Active Substance: PENICILLIN V
     Dosage: UNK UNK, QD (1 MIOUI 1X PER DAY)
     Route: 048
  5. BACTRIM [Concomitant]
     Active Substance: SULFAMETHOXAZOLE\TRIMETHOPRIM
     Dosage: UNK, 3XW (TUESDAY, WEDNESDAY, FRIDAY)
     Route: 065
  6. VALTREX [Concomitant]
     Active Substance: VALACYCLOVIR HYDROCHLORIDE
     Dosage: 500 MILLIGRAM, BID (500 MG 1X PER 12H)
     Route: 065
  7. CRESEMBA [Concomitant]
     Active Substance: ISAVUCONAZONIUM SULFATE
     Dosage: 200 MILLIGRAM, QD (200MG PER DAY)
     Route: 065
  8. ESOMEPRAZOLE [Concomitant]
     Active Substance: ESOMEPRAZOLE
     Dosage: 20 MILLIGRAM, QD (20 MG 1X PER DAY)
     Route: 048
  9. METOPROLOL SUCCINATE [Concomitant]
     Active Substance: METOPROLOL SUCCINATE
     Dosage: 12.5 MILLIGRAM, QD (12.5 MG 1X PER DAY (MORNING))
     Route: 065
  10. CALCIUM\CHOLECALCIFEROL [Concomitant]
     Active Substance: CALCIUM\CHOLECALCIFEROL
     Dosage: UNK, QD (500MG/800UI TABLET, 1X PER DAY)
     Route: 065
  11. AMLODIPINE [Concomitant]
     Active Substance: AMLODIPINE BESYLATE
     Dosage: 5 MILLIGRAM, PM (5MG PER DAY IN THE EVENING)
     Route: 065
  12. MAGNESIUM [Concomitant]
     Active Substance: MAGNESIUM
     Dosage: UNK, BID (2X PER DAY ORAL (MORNING AND EVENING))
     Route: 048

REACTIONS (2)
  - Acute myeloid leukaemia recurrent [Unknown]
  - Off label use [Unknown]
